FAERS Safety Report 9245943 (Version 4)
Quarter: 2013Q3

REPORT INFORMATION
  Report Type: Report from Study
  Country: UA (occurrence: UA)
  Receive Date: 20130422
  Receipt Date: 20130716
  Transmission Date: 20140515
  Serious: Yes (Other)
  Sender: FDA-Public Use
  Company Number: UA-GLAXOSMITHKLINE-Z0019420A

PATIENT
  Age: 65 Year
  Sex: Male
  Weight: 72.5 kg

DRUGS (3)
  1. OFATUMUMAB [Suspect]
     Indication: CHRONIC LYMPHOCYTIC LEUKAEMIA
     Route: 042
     Dates: start: 20110727, end: 20111214
  2. FLUDARABINE [Suspect]
     Indication: CHRONIC LYMPHOCYTIC LEUKAEMIA
     Dosage: 25MGM2 CYCLIC
     Route: 042
     Dates: start: 20110727, end: 20111216
  3. CYCLOPHOSPHAMIDE [Suspect]
     Indication: CHRONIC LYMPHOCYTIC LEUKAEMIA
     Dosage: 250MGM2 CYCLIC
     Route: 042
     Dates: start: 20110727, end: 20111216

REACTIONS (1)
  - Hepatitis B [Not Recovered/Not Resolved]
